FAERS Safety Report 6493590-9 (Version None)
Quarter: 2009Q4

REPORT INFORMATION
  Report Type: 
  Country: None (occurrence: None)
  Receive Date: 20091214
  Receipt Date: 20091204
  Transmission Date: 20100525
  Serious: Yes (Life-Threatening, Hospitalization, Disabling, Other)
  Sender: FDA-Public Use
  Company Number: A0809076A

PATIENT
  Age: 68 Year
  Sex: Female
  Weight: 96.8 kg

DRUGS (2)
  1. TYKERB [Suspect]
     Indication: DRUG USE FOR UNKNOWN INDICATION
     Dosage: 1500MG PER DAY
     Route: 048
     Dates: start: 20090717, end: 20090831
  2. TAXOL [Suspect]
     Indication: DRUG USE FOR UNKNOWN INDICATION
     Dates: start: 20090717, end: 20090801

REACTIONS (16)
  - ANAEMIA [None]
  - CHEST PAIN [None]
  - COUGH [None]
  - DYSPNOEA [None]
  - FATIGUE [None]
  - HYPERCAPNIA [None]
  - HYPOCAPNIA [None]
  - HYPOXIA [None]
  - INTERSTITIAL LUNG DISEASE [None]
  - LUNG INFILTRATION [None]
  - LUNG NEOPLASM [None]
  - NEUROPATHY PERIPHERAL [None]
  - PLEURITIC PAIN [None]
  - PYREXIA [None]
  - RALES [None]
  - TACHYPNOEA [None]
